FAERS Safety Report 4630033-1 (Version None)
Quarter: 2005Q2

REPORT INFORMATION
  Report Type: 
  Country: None (occurrence: None)
  Receive Date: 20050408
  Receipt Date: 20050330
  Transmission Date: 20051028
  Serious: Yes (Hospitalization)
  Sender: FDA-Public Use
  Company Number: US-BRISTOL-MYERS SQUIBB COMPANY-12917464

PATIENT
  Age: 25 Year
  Sex: Female

DRUGS (1)
  1. SERZONE [Suspect]
     Dates: start: 19960301, end: 20040801

REACTIONS (2)
  - LIVER DISORDER [None]
  - LIVER TRANSPLANT [None]
